FAERS Safety Report 17032103 (Version 1)
Quarter: 2019Q4

REPORT INFORMATION
  Report Type: Spontaneous
  Country: FR (occurrence: FR)
  Receive Date: 20191114
  Receipt Date: 20191114
  Transmission Date: 20200122
  Serious: Yes (Other)
  Sender: FDA-Public Use
  Company Number: FR-MYLANLABS-2019M1109089

PATIENT
  Age: 38 Year

DRUGS (1)
  1. IMATINIB. [Suspect]
     Active Substance: IMATINIB MESYLATE
     Indication: FIBROMATOSIS
     Dosage: UNK
     Route: 065

REACTIONS (3)
  - Neoplasm progression [Recovered/Resolved]
  - Product use in unapproved indication [Unknown]
  - Fibromatosis [Recovered/Resolved]
